FAERS Safety Report 5904215-2 (Version None)
Quarter: 2008Q3

REPORT INFORMATION
  Report Type: 
  Country: None (occurrence: None)
  Receive Date: 20080930
  Receipt Date: 20080930
  Transmission Date: 20090109
  Serious: Yes (Other)
  Sender: FDA-Public Use
  Company Number: None

PATIENT
  Sex: Male

DRUGS (2)
  1. PAXIL [Suspect]
     Indication: ANXIETY
     Dosage: 20 MG AM IV
     Route: 042
  2. LEXAPRO [Suspect]
     Dosage: IV 20 MG QD
     Route: 042

REACTIONS (2)
  - ANXIETY [None]
  - DYSPNOEA [None]
